FAERS Safety Report 21004180 (Version 1)
Quarter: 2022Q2

REPORT INFORMATION
  Report Type: Spontaneous
  Country: US (occurrence: US)
  Receive Date: 20220624
  Receipt Date: 20220624
  Transmission Date: 20220721
  Serious: No
  Sender: FDA-Public Use
  Company Number: US-AVEO ONCOLOGY-2022-AVEO-US000102

PATIENT

DRUGS (29)
  1. FOTIVDA [Suspect]
     Active Substance: TIVOZANIB HYDROCHLORIDE
     Indication: Renal cell carcinoma
     Dosage: 1.34 MG,TAKE 1 CAPSULE DAILY 21 DAYS ON/ 7 DAYS OFF
     Route: 048
     Dates: start: 20220310, end: 20220325
  2. AMOXICILLIN [Concomitant]
     Active Substance: AMOXICILLIN
  3. ASCORBIC ACID [Concomitant]
     Active Substance: ASCORBIC ACID
  4. ELIQUIS [Concomitant]
     Active Substance: APIXABAN
  5. GABAPENTIN [Concomitant]
     Active Substance: GABAPENTIN
  6. HYDROXYZINE [Concomitant]
     Active Substance: HYDROXYZINE HYDROCHLORIDE
  7. LOSARTAN [Concomitant]
     Active Substance: LOSARTAN
  8. POTASSIUM [Concomitant]
     Active Substance: POTASSIUM
  9. PROCHLORPERAZINE [Concomitant]
     Active Substance: PROCHLORPERAZINE
  10. VOLTAREN [Concomitant]
     Active Substance: DICLOFENAC SODIUM
  11. ARICEPT [Concomitant]
     Active Substance: DONEPEZIL HYDROCHLORIDE
  12. ASPIRIN [Concomitant]
     Active Substance: ASPIRIN
  13. COLACE [Concomitant]
     Active Substance: DOCUSATE SODIUM
  14. DULERA [Concomitant]
     Active Substance: FORMOTEROL FUMARATE DIHYDRATE\MOMETASONE FUROATE
  15. ESZOPICLONE [Concomitant]
     Active Substance: ESZOPICLONE
  16. VITAMIN D3 [Concomitant]
     Active Substance: CHOLECALCIFEROL
  17. NAMENDA [Concomitant]
     Active Substance: MEMANTINE HYDROCHLORIDE
  18. ONDANSETRON [Concomitant]
     Active Substance: ONDANSETRON
  19. ZINC [Concomitant]
     Active Substance: ZINC
  20. MEDICAL FOOD [Concomitant]
     Active Substance: MEDICAL FOOD
  21. XANAX [Concomitant]
     Active Substance: ALPRAZOLAM
  22. ARMOUR THYROID [Concomitant]
     Active Substance: THYROID, PORCINE
  23. BENZONATATE [Concomitant]
     Active Substance: BENZONATATE
  24. DUTASTERIDE [Concomitant]
     Active Substance: DUTASTERIDE
  25. FUROSEMIDE [Concomitant]
     Active Substance: FUROSEMIDE
  26. METOPROLOL [Concomitant]
     Active Substance: METOPROLOL
  27. VITAMINS [Concomitant]
     Active Substance: VITAMINS
  28. NEOSPORIN [Concomitant]
     Active Substance: BACITRACIN ZINC\NEOMYCIN SULFATE\POLYMYXIN B SULFATE
  29. TRAMADOL [Concomitant]
     Active Substance: TRAMADOL

REACTIONS (1)
  - Skin ulcer [Unknown]
